FAERS Safety Report 6117479-X (Version None)
Quarter: 2009Q1

REPORT INFORMATION
  Report Type: 
  Country: None (occurrence: None)
  Receive Date: 20090314
  Receipt Date: 20090116
  Transmission Date: 20090719
  Serious: No
  Sender: FDA-Public Use
  Company Number: US-ABBOTT-09P-163-0498601-00

PATIENT
  Sex: Male
  Weight: 108.96 kg

DRUGS (3)
  1. HUMIRA [Suspect]
     Indication: RHEUMATOID ARTHRITIS
     Route: 058
     Dates: start: 20080701
  2. CRESTOR [Suspect]
     Indication: BLOOD CHOLESTEROL INCREASED
     Dates: end: 20090116
  3. HIGH BLOOD PRESSURE PILLS [Concomitant]
     Indication: HYPERTENSION

REACTIONS (3)
  - LOSS OF CONTROL OF LEGS [None]
  - MUSCULAR WEAKNESS [None]
  - VISUAL ACUITY REDUCED [None]
